FAERS Safety Report 9382470 (Version 1)
Quarter: 2013Q3

REPORT INFORMATION
  Report Type: Spontaneous
  Country: BR (occurrence: BR)
  Receive Date: 20130703
  Receipt Date: 20130703
  Transmission Date: 20140515
  Serious: Yes (Hospitalization)
  Sender: FDA-Public Use
  Company Number: BR-ASTRAZENECA-2013SE49572

PATIENT
  Age: 38 Year
  Sex: Female
  Weight: 85 kg

DRUGS (4)
  1. NEXIUM [Suspect]
     Indication: DYSPEPSIA
     Route: 048
     Dates: start: 2009
  2. NEXIUM [Suspect]
     Indication: NAUSEA
     Route: 048
     Dates: start: 2009
  3. NEXIUM [Suspect]
     Indication: GASTRIC POLYPS
     Route: 048
     Dates: start: 2009
  4. CRESTOR [Suspect]
     Indication: DYSLIPIDAEMIA
     Route: 048
     Dates: start: 2010

REACTIONS (4)
  - Gastric polyps [Recovered/Resolved]
  - Dyspepsia [Unknown]
  - Nausea [Unknown]
  - Intentional drug misuse [Unknown]
